FAERS Safety Report 14990384 (Version 1)
Quarter: 2018Q2

REPORT INFORMATION
  Report Type: Spontaneous
  Country: US (occurrence: US)
  Receive Date: 20180608
  Receipt Date: 20180608
  Transmission Date: 20180711
  Serious: No
  Sender: FDA-Public Use
  Company Number: US-ROCHE-2083850

PATIENT
  Sex: Female

DRUGS (4)
  1. IBUPROFEN. [Concomitant]
     Active Substance: IBUPROFEN
     Route: 065
  2. ACTEMRA [Suspect]
     Active Substance: TOCILIZUMAB
     Indication: RHEUMATOID ARTHRITIS
     Route: 058
     Dates: start: 201709
  3. SULFASALAZINE DELAYED-RELEASE [Concomitant]
     Active Substance: SULFASALAZINE
     Route: 065
  4. PREDNISONE. [Concomitant]
     Active Substance: PREDNISONE
     Route: 065

REACTIONS (1)
  - Headache [Not Recovered/Not Resolved]
